FAERS Safety Report 10052029 (Version 3)
Quarter: 2014Q2

REPORT INFORMATION
  Report Type: Report from Study
  Country: CA (occurrence: CA)
  Receive Date: 20140402
  Receipt Date: 20140508
  Transmission Date: 20141212
  Serious: Yes (Other)
  Sender: FDA-Public Use
  Company Number: CA-ROCHE-1061152

PATIENT
  Age: 44 Year
  Sex: Female
  Weight: 54.48 kg

DRUGS (10)
  1. ACTEMRA [Suspect]
     Indication: RHEUMATOID ARTHRITIS
     Route: 042
     Dates: start: 20120119, end: 20120403
  2. RITUXAN [Suspect]
     Indication: RHEUMATOID ARTHRITIS
     Route: 042
     Dates: start: 201205
  3. RITUXAN [Suspect]
     Dosage: DAY 1 AND15
     Route: 042
     Dates: start: 20120607, end: 201312
  4. NAPROXEN [Concomitant]
     Route: 065
  5. TYLENOL ARTHRITIS [Concomitant]
  6. ACTONEL [Concomitant]
     Route: 065
  7. DOXYCYCLINE [Concomitant]
  8. RABEPRAZOLE [Concomitant]
  9. PREDNISONE [Concomitant]
     Route: 065
  10. METHOTREXATE [Concomitant]
     Route: 065

REACTIONS (4)
  - Anaphylactic reaction [Recovered/Resolved with Sequelae]
  - Breast cancer [Not Recovered/Not Resolved]
  - Hypertension [Not Recovered/Not Resolved]
  - Osteoporosis [Not Recovered/Not Resolved]
